FAERS Safety Report 17880273 (Version 1)
Quarter: 2020Q2

REPORT INFORMATION
  Report Type: Spontaneous
  Country: US (occurrence: US)
  Receive Date: 20200610
  Receipt Date: 20200610
  Transmission Date: 20200714
  Serious: No
  Sender: FDA-Public Use
  Company Number: None

PATIENT
  Age: 57 Year
  Sex: Male
  Weight: 55.6 kg

DRUGS (12)
  1. REMDESIVIR INJECTION 100 MG/20 ML SOLUTION [Suspect]
     Active Substance: REMDESIVIR
     Indication: COVID-19
     Route: 041
     Dates: start: 20200520, end: 20200525
  2. CEFEPIM 2GM [Concomitant]
     Dates: start: 20200518, end: 20200522
  3. FERROUS SULFATE 300 MG [Concomitant]
     Dates: start: 20200516, end: 20200602
  4. LEVOTHYROXINE 75 MCG [Concomitant]
     Active Substance: LEVOTHYROXINE
     Dates: start: 20200516, end: 20200602
  5. ENOXAPARIN 40 MG [Concomitant]
     Active Substance: ENOXAPARIN
     Dates: start: 20200516, end: 20200602
  6. ASPIRIN 81 MG [Concomitant]
     Active Substance: ASPIRIN
     Dates: start: 20200516, end: 20200602
  7. CHOLECALCIFEROL 1000 IU [Concomitant]
     Dates: start: 20200516, end: 20200602
  8. ATORVASTATIN 40 MG [Concomitant]
     Active Substance: ATORVASTATIN
     Dates: start: 20200516, end: 20200602
  9. FAMOTIDINE 20 MG [Concomitant]
     Active Substance: FAMOTIDINE
     Dates: start: 20200516, end: 20200602
  10. MIDODRINE 5 MG [Concomitant]
     Dates: start: 20200518, end: 20200523
  11. VANCOMYCIN 1GM [Concomitant]
     Active Substance: VANCOMYCIN
     Dates: start: 20200519, end: 20200602
  12. PREDNISONE 5 MG [Concomitant]
     Active Substance: PREDNISONE
     Dates: start: 20200516, end: 20200602

REACTIONS (3)
  - Infusion related reaction [None]
  - Erythema [None]
  - Flushing [None]

NARRATIVE: CASE EVENT DATE: 20200521
